FAERS Safety Report 7372555-9 (Version None)
Quarter: 2011Q1

REPORT INFORMATION
  Report Type: 
  Country: None (occurrence: None)
  Receive Date: 20110324
  Receipt Date: 20110321
  Transmission Date: 20110831
  Serious: Yes (Other)
  Sender: FDA-Public Use
  Company Number: GB-BRISTOL-MYERS SQUIBB COMPANY-15591704

PATIENT
  Age: 60 Year
  Sex: Male
  Weight: 65 kg

DRUGS (3)
  1. ATAZANAVIR [Suspect]
     Indication: HIV INFECTION
     Route: 048
  2. TRUVADA [Concomitant]
     Indication: HIV INFECTION
     Dosage: 1 DF = 1TAB
     Dates: start: 20090901, end: 20110201
  3. NORVIR [Concomitant]
     Indication: HIV INFECTION
     Dates: start: 20090901, end: 20110201

REACTIONS (2)
  - SYNCOPE [None]
  - ARRHYTHMIA [None]
